FAERS Safety Report 5972433-3 (Version None)
Quarter: 2008Q4

REPORT INFORMATION
  Report Type: 
  Country: None (occurrence: None)
  Receive Date: 20081201
  Receipt Date: 20081027
  Transmission Date: 20090506
  Serious: No
  Sender: FDA-Public Use
  Company Number: PR-BAYER-200834165NA

PATIENT
  Age: 93 Year
  Sex: Female

DRUGS (3)
  1. AVELOX [Suspect]
     Indication: BRONCHITIS
  2. ALBUTEROL [Concomitant]
  3. PHENERGAN DM [Concomitant]

REACTIONS (4)
  - CANDIDIASIS [None]
  - OEDEMA PERIPHERAL [None]
  - ORAL DISORDER [None]
  - STOMATITIS [None]
